FAERS Safety Report 5477421-1 (Version None)
Quarter: 2007Q4

REPORT INFORMATION
  Report Type: 
  Country: None (occurrence: None)
  Receive Date: 20071004
  Receipt Date: 20070925
  Transmission Date: 20080405
  Serious: Yes (Death, Other)
  Sender: FDA-Public Use
  Company Number: NO-ABBOTT-07P-122-0417377-00

PATIENT
  Sex: Female

DRUGS (5)
  1. HUMIRA [Suspect]
     Indication: PSORIATIC ARTHROPATHY
     Route: 058
     Dates: start: 20051010
  2. MAREVAN [Suspect]
     Indication: ATRIAL FLUTTER
     Route: 048
     Dates: start: 20040101, end: 20070816
  3. BIMATOPROST [Concomitant]
     Indication: GLAUCOMA
     Route: 031
  4. PIVMECILLINAM HYDROCHLORIDE [Concomitant]
     Indication: DRUG USE FOR UNKNOWN INDICATION
  5. MIRTAZAPINE [Concomitant]
     Indication: DRUG USE FOR UNKNOWN INDICATION
     Route: 048

REACTIONS (8)
  - BRAIN DAMAGE [None]
  - CATARACT [None]
  - CONJUNCTIVAL HYPERAEMIA [None]
  - FALL [None]
  - HEAD INJURY [None]
  - INTRAOCULAR PRESSURE INCREASED [None]
  - RADIUS FRACTURE [None]
  - SUBDURAL HAEMATOMA [None]
